FAERS Safety Report 22065684 (Version 10)
Quarter: 2025Q3

REPORT INFORMATION
  Report Type: Spontaneous
  Country: CA (occurrence: CA)
  Receive Date: 20230306
  Receipt Date: 20250824
  Transmission Date: 20251020
  Serious: Yes (Death, Other)
  Sender: BRISTOL-MYERS SQUIBB COMPANY
  Company Number: CA-BRISTOL-MYERS SQUIBB COMPANY-2023-032579

PATIENT
  Age: 44 Year
  Sex: Female
  Weight: 97 kg

DRUGS (815)
  1. ORENCIA [Suspect]
     Active Substance: ABATACEPT
     Indication: Rheumatoid arthritis
     Route: 042
  2. ORENCIA [Suspect]
     Active Substance: ABATACEPT
     Route: 042
  3. ORENCIA [Suspect]
     Active Substance: ABATACEPT
     Route: 041
  4. ORENCIA [Suspect]
     Active Substance: ABATACEPT
     Route: 042
  5. ORENCIA [Suspect]
     Active Substance: ABATACEPT
     Route: 042
  6. ORENCIA [Suspect]
     Active Substance: ABATACEPT
     Route: 042
  7. ORENCIA [Suspect]
     Active Substance: ABATACEPT
     Route: 042
  8. ORENCIA [Suspect]
     Active Substance: ABATACEPT
     Route: 042
  9. ORENCIA [Suspect]
     Active Substance: ABATACEPT
     Route: 042
  10. ORENCIA [Suspect]
     Active Substance: ABATACEPT
     Route: 042
  11. ORENCIA [Suspect]
     Active Substance: ABATACEPT
     Indication: Rheumatoid arthritis
     Route: 058
  12. ORENCIA [Suspect]
     Active Substance: ABATACEPT
     Route: 058
  13. ORENCIA [Suspect]
     Active Substance: ABATACEPT
     Route: 058
  14. ORENCIA [Suspect]
     Active Substance: ABATACEPT
     Route: 058
  15. ORENCIA [Suspect]
     Active Substance: ABATACEPT
     Route: 058
  16. ORENCIA [Suspect]
     Active Substance: ABATACEPT
     Route: 058
  17. ORENCIA [Suspect]
     Active Substance: ABATACEPT
     Route: 058
  18. ORENCIA [Suspect]
     Active Substance: ABATACEPT
     Route: 058
  19. ORENCIA [Suspect]
     Active Substance: ABATACEPT
     Route: 058
  20. ORENCIA [Suspect]
     Active Substance: ABATACEPT
     Route: 058
  21. ORENCIA [Suspect]
     Active Substance: ABATACEPT
     Route: 058
  22. ORENCIA [Suspect]
     Active Substance: ABATACEPT
     Route: 058
  23. TRIAMCINOLONE ACETONIDE [Suspect]
     Active Substance: TRIAMCINOLONE ACETONIDE
     Indication: Rheumatoid arthritis
     Route: 014
  24. TRIAMCINOLONE ACETONIDE [Suspect]
     Active Substance: TRIAMCINOLONE ACETONIDE
     Route: 014
  25. ORENCIA [Suspect]
     Active Substance: ABATACEPT
     Indication: Rheumatoid arthritis
  26. ORENCIA [Suspect]
     Active Substance: ABATACEPT
  27. ORENCIA [Suspect]
     Active Substance: ABATACEPT
  28. ORENCIA [Suspect]
     Active Substance: ABATACEPT
  29. ORENCIA [Suspect]
     Active Substance: ABATACEPT
  30. ORENCIA [Suspect]
     Active Substance: ABATACEPT
  31. ORENCIA [Suspect]
     Active Substance: ABATACEPT
  32. ORENCIA [Suspect]
     Active Substance: ABATACEPT
  33. ORENCIA [Suspect]
     Active Substance: ABATACEPT
  34. ORENCIA [Suspect]
     Active Substance: ABATACEPT
     Route: 067
  35. BOTULINUM TOXIN TYPE A [Concomitant]
     Active Substance: BOTULINUM TOXIN TYPE A
     Indication: Product used for unknown indication
  36. FOSAMAX [Concomitant]
     Active Substance: ALENDRONATE SODIUM
     Indication: Rheumatoid arthritis
     Route: 048
  37. FOSAMAX [Concomitant]
     Active Substance: ALENDRONATE SODIUM
  38. FOSAMAX [Concomitant]
     Active Substance: ALENDRONATE SODIUM
     Route: 048
  39. FOSAMAX [Concomitant]
     Active Substance: ALENDRONATE SODIUM
     Route: 048
  40. ACETAMINOPHEN [Concomitant]
     Active Substance: ACETAMINOPHEN
     Indication: Rheumatoid arthritis
  41. ACETAMINOPHEN [Concomitant]
     Active Substance: ACETAMINOPHEN
     Indication: Pyrexia
  42. ACETAMINOPHEN [Concomitant]
     Active Substance: ACETAMINOPHEN
     Route: 058
  43. ACETAMINOPHEN [Concomitant]
     Active Substance: ACETAMINOPHEN
     Route: 042
  44. ACETAMINOPHEN [Concomitant]
     Active Substance: ACETAMINOPHEN
  45. ACETAMINOPHEN [Concomitant]
     Active Substance: ACETAMINOPHEN
  46. ACETAMINOPHEN\CODEINE PHOSPHATE [Concomitant]
     Active Substance: ACETAMINOPHEN\CODEINE PHOSPHATE
     Indication: Product used for unknown indication
  47. ACETAMINOPHEN\CODEINE PHOSPHATE [Concomitant]
     Active Substance: ACETAMINOPHEN\CODEINE PHOSPHATE
  48. ACTEMRA [Concomitant]
     Active Substance: TOCILIZUMAB
     Indication: Rheumatoid arthritis
  49. ACTEMRA [Concomitant]
     Active Substance: TOCILIZUMAB
     Route: 042
  50. ACTEMRA [Concomitant]
     Active Substance: TOCILIZUMAB
     Route: 042
  51. ACTEMRA [Concomitant]
     Active Substance: TOCILIZUMAB
     Route: 042
  52. ACTEMRA [Concomitant]
     Active Substance: TOCILIZUMAB
     Route: 042
  53. ACTEMRA [Concomitant]
     Active Substance: TOCILIZUMAB
     Route: 042
  54. ACTEMRA [Concomitant]
     Active Substance: TOCILIZUMAB
     Route: 042
  55. ACTEMRA [Concomitant]
     Active Substance: TOCILIZUMAB
     Route: 058
  56. ACTEMRA [Concomitant]
     Active Substance: TOCILIZUMAB
     Route: 042
  57. ACTEMRA [Concomitant]
     Active Substance: TOCILIZUMAB
     Route: 058
  58. ACTEMRA [Concomitant]
     Active Substance: TOCILIZUMAB
     Route: 048
  59. ACTEMRA [Concomitant]
     Active Substance: TOCILIZUMAB
  60. ACTEMRA [Concomitant]
     Active Substance: TOCILIZUMAB
  61. ACTEMRA [Concomitant]
     Active Substance: TOCILIZUMAB
  62. ACTEMRA [Concomitant]
     Active Substance: TOCILIZUMAB
     Route: 058
  63. ACTEMRA [Concomitant]
     Active Substance: TOCILIZUMAB
     Route: 042
  64. ACTEMRA [Concomitant]
     Active Substance: TOCILIZUMAB
     Route: 058
  65. ACTEMRA [Concomitant]
     Active Substance: TOCILIZUMAB
     Route: 042
  66. ACTEMRA [Concomitant]
     Active Substance: TOCILIZUMAB
  67. ACTEMRA [Concomitant]
     Active Substance: TOCILIZUMAB
     Route: 042
  68. ACTEMRA [Concomitant]
     Active Substance: TOCILIZUMAB
     Route: 042
  69. ACTEMRA [Concomitant]
     Active Substance: TOCILIZUMAB
     Route: 042
  70. ACTEMRA [Concomitant]
     Active Substance: TOCILIZUMAB
     Route: 058
  71. ACTEMRA [Concomitant]
     Active Substance: TOCILIZUMAB
     Route: 058
  72. ACTEMRA [Concomitant]
     Active Substance: TOCILIZUMAB
     Route: 042
  73. ADALIMUMAB [Concomitant]
     Active Substance: ADALIMUMAB
     Indication: Psoriatic arthropathy
     Route: 058
  74. ADALIMUMAB [Concomitant]
     Active Substance: ADALIMUMAB
     Indication: Rheumatoid arthritis
     Route: 058
  75. ADALIMUMAB [Concomitant]
     Active Substance: ADALIMUMAB
     Route: 058
  76. ADALIMUMAB [Concomitant]
     Active Substance: ADALIMUMAB
     Route: 048
  77. ADALIMUMAB [Concomitant]
     Active Substance: ADALIMUMAB
     Route: 048
  78. ADALIMUMAB [Concomitant]
     Active Substance: ADALIMUMAB
     Route: 042
  79. ADALIMUMAB [Concomitant]
     Active Substance: ADALIMUMAB
     Route: 048
  80. ADALIMUMAB [Concomitant]
     Active Substance: ADALIMUMAB
  81. ADALIMUMAB [Concomitant]
     Active Substance: ADALIMUMAB
     Route: 058
  82. ALENDRONIC ACID [Concomitant]
     Active Substance: ALENDRONIC ACID
     Indication: Rheumatoid arthritis
  83. ALENDRONIC ACID [Concomitant]
     Active Substance: ALENDRONIC ACID
  84. ALENDRONIC ACID [Concomitant]
     Active Substance: ALENDRONIC ACID
     Route: 048
  85. ALENDRONIC ACID [Concomitant]
     Active Substance: ALENDRONIC ACID
     Route: 048
  86. ALENDRONIC ACID [Concomitant]
     Active Substance: ALENDRONIC ACID
     Route: 048
  87. ALENDRONIC ACID [Concomitant]
     Active Substance: ALENDRONIC ACID
     Route: 048
  88. PREDNISONE [Concomitant]
     Active Substance: PREDNISONE
     Indication: Rheumatoid arthritis
  89. PREDNISONE [Concomitant]
     Active Substance: PREDNISONE
  90. PREDNISONE [Concomitant]
     Active Substance: PREDNISONE
     Route: 048
  91. PREDNISONE [Concomitant]
     Active Substance: PREDNISONE
  92. PREDNISONE [Concomitant]
     Active Substance: PREDNISONE
  93. PREDNISONE [Concomitant]
     Active Substance: PREDNISONE
  94. APREMILAST [Concomitant]
     Active Substance: APREMILAST
     Indication: Rheumatoid arthritis
  95. APREMILAST [Concomitant]
     Active Substance: APREMILAST
     Route: 042
  96. APREMILAST [Concomitant]
     Active Substance: APREMILAST
  97. ARAVA [Concomitant]
     Active Substance: LEFLUNOMIDE
     Indication: Rheumatoid arthritis
     Route: 048
  98. ARAVA [Concomitant]
     Active Substance: LEFLUNOMIDE
     Route: 048
  99. ARAVA [Concomitant]
     Active Substance: LEFLUNOMIDE
  100. ARAVA [Concomitant]
     Active Substance: LEFLUNOMIDE
  101. ARAVA [Concomitant]
     Active Substance: LEFLUNOMIDE
  102. ARAVA [Concomitant]
     Active Substance: LEFLUNOMIDE
  103. ARAVA [Concomitant]
     Active Substance: LEFLUNOMIDE
  104. ARAVA [Concomitant]
     Active Substance: LEFLUNOMIDE
  105. ATIVAN [Concomitant]
     Active Substance: LORAZEPAM
     Indication: Anxiety
  106. ATIVAN [Concomitant]
     Active Substance: LORAZEPAM
     Indication: Rheumatoid arthritis
  107. CAFFEINE [Concomitant]
     Active Substance: CAFFEINE
     Indication: Rheumatoid arthritis
  108. CAFFEINE CITRATE [Concomitant]
     Active Substance: CAFFEINE CITRATE
     Indication: Product used for unknown indication
     Route: 048
  109. CALCIUM [Concomitant]
     Active Substance: CALCIUM
     Indication: Product used for unknown indication
  110. CALCIUM CARBONATE [Concomitant]
     Active Substance: CALCIUM CARBONATE
     Indication: Product used for unknown indication
  111. CALCIUM CARBONATE [Concomitant]
     Active Substance: CALCIUM CARBONATE
     Route: 016
  112. CALCIUM CARBONATE\CALCIUM LACTATE GLUCONATE [Concomitant]
     Active Substance: CALCIUM CARBONATE\CALCIUM LACTATE GLUCONATE
     Indication: Product used for unknown indication
  113. CALCIUM GLUBIONATE [Concomitant]
     Active Substance: CALCIUM GLUBIONATE
     Indication: Product used for unknown indication
  114. CELEBREX [Concomitant]
     Active Substance: CELECOXIB
     Indication: Rheumatoid arthritis
     Route: 048
  115. CELEBREX [Concomitant]
     Active Substance: CELECOXIB
     Indication: Arthritis
  116. CELEBREX [Concomitant]
     Active Substance: CELECOXIB
  117. CELEBREX [Concomitant]
     Active Substance: CELECOXIB
     Route: 048
  118. CELEBREX [Concomitant]
     Active Substance: CELECOXIB
  119. CELEBREX [Concomitant]
     Active Substance: CELECOXIB
     Route: 048
  120. CERTOLIZUMAB PEGOL [Concomitant]
     Active Substance: CERTOLIZUMAB PEGOL
     Indication: Product used for unknown indication
  121. CERTOLIZUMAB PEGOL [Concomitant]
     Active Substance: CERTOLIZUMAB PEGOL
     Route: 058
  122. CETIRIZINE [Concomitant]
     Active Substance: CETIRIZINE HYDROCHLORIDE
     Indication: Rheumatoid arthritis
  123. CETIRIZINE [Concomitant]
     Active Substance: CETIRIZINE HYDROCHLORIDE
     Route: 048
  124. CETIRIZINE [Concomitant]
     Active Substance: CETIRIZINE HYDROCHLORIDE
     Route: 048
  125. CETIRIZINE [Concomitant]
     Active Substance: CETIRIZINE HYDROCHLORIDE
     Route: 048
  126. CETIRIZINE [Concomitant]
     Active Substance: CETIRIZINE HYDROCHLORIDE
     Route: 048
  127. CETIRIZINE [Concomitant]
     Active Substance: CETIRIZINE HYDROCHLORIDE
  128. CETIRIZINE [Concomitant]
     Active Substance: CETIRIZINE HYDROCHLORIDE
     Route: 016
  129. CETIRIZINE [Concomitant]
     Active Substance: CETIRIZINE HYDROCHLORIDE
  130. CETIRIZINE [Concomitant]
     Active Substance: CETIRIZINE HYDROCHLORIDE
  131. CETIRIZINE HYDROCHLORIDE [Concomitant]
     Active Substance: CETIRIZINE HYDROCHLORIDE
     Indication: Rheumatoid arthritis
  132. CETIRIZINE HYDROCHLORIDE [Concomitant]
     Active Substance: CETIRIZINE HYDROCHLORIDE
     Route: 048
  133. CETIRIZINE HYDROCHLORIDE [Concomitant]
     Active Substance: CETIRIZINE HYDROCHLORIDE
     Route: 048
  134. CETIRIZINE HYDROCHLORIDE [Concomitant]
     Active Substance: CETIRIZINE HYDROCHLORIDE
  135. CETIRIZINE HYDROCHLORIDE [Concomitant]
     Active Substance: CETIRIZINE HYDROCHLORIDE
  136. CETIRIZINE HYDROCHLORIDE [Concomitant]
     Active Substance: CETIRIZINE HYDROCHLORIDE
  137. CETIRIZINE HYDROCHLORIDE [Concomitant]
     Active Substance: CETIRIZINE HYDROCHLORIDE
     Route: 048
  138. CETIRIZINE HYDROCHLORIDE [Concomitant]
     Active Substance: CETIRIZINE HYDROCHLORIDE
  139. CETIRIZINE HYDROCHLORIDE [Concomitant]
     Active Substance: CETIRIZINE HYDROCHLORIDE
     Route: 048
  140. CETIRIZINE HYDROCHLORIDE [Concomitant]
     Active Substance: CETIRIZINE HYDROCHLORIDE
  141. CETIRIZINE HYDROCHLORIDE [Concomitant]
     Active Substance: CETIRIZINE HYDROCHLORIDE
     Route: 048
  142. CETIRIZINE HYDROCHLORIDE [Concomitant]
     Active Substance: CETIRIZINE HYDROCHLORIDE
     Route: 048
  143. CETIRIZINE HYDROCHLORIDE [Concomitant]
     Active Substance: CETIRIZINE HYDROCHLORIDE
  144. CETIRIZINE HYDROCHLORIDE [Concomitant]
     Active Substance: CETIRIZINE HYDROCHLORIDE
  145. CETIRIZINE HYDROCHLORIDE [Concomitant]
     Active Substance: CETIRIZINE HYDROCHLORIDE
  146. CETIRIZINE HYDROCHLORIDE [Concomitant]
     Active Substance: CETIRIZINE HYDROCHLORIDE
  147. CETIRIZINE HYDROCHLORIDE [Concomitant]
     Active Substance: CETIRIZINE HYDROCHLORIDE
  148. CETIRIZINE HYDROCHLORIDE [Concomitant]
     Active Substance: CETIRIZINE HYDROCHLORIDE
  149. CETIRIZINE HYDROCHLORIDE [Concomitant]
     Active Substance: CETIRIZINE HYDROCHLORIDE
  150. CETIRIZINE HYDROCHLORIDE [Concomitant]
     Active Substance: CETIRIZINE HYDROCHLORIDE
  151. CHLORHEXIDINE [Concomitant]
     Active Substance: CHLORHEXIDINE
     Indication: Product used for unknown indication
     Route: 002
  152. CHLORHEXIDINE [Concomitant]
     Active Substance: CHLORHEXIDINE
     Route: 048
  153. CHLORHEXIDINE [Concomitant]
     Active Substance: CHLORHEXIDINE
  154. CHLORHEXIDINE [Concomitant]
     Active Substance: CHLORHEXIDINE
     Route: 061
  155. CHLORHEXIDINE GLUCONATE [Concomitant]
     Active Substance: CHLORHEXIDINE GLUCONATE
     Indication: Product used for unknown indication
     Route: 061
  156. CHLORHEXIDINE GLUCONATE [Concomitant]
     Active Substance: CHLORHEXIDINE GLUCONATE
     Route: 002
  157. CHLORHEXIDINE GLUCONATE [Concomitant]
     Active Substance: CHLORHEXIDINE GLUCONATE
     Route: 048
  158. CIMZIA [Concomitant]
     Active Substance: CERTOLIZUMAB PEGOL
     Indication: Rheumatoid arthritis
     Route: 058
  159. CIMZIA [Concomitant]
     Active Substance: CERTOLIZUMAB PEGOL
     Indication: Psoriasis
     Route: 058
  160. CIMZIA [Concomitant]
     Active Substance: CERTOLIZUMAB PEGOL
     Route: 058
  161. CIMZIA [Concomitant]
     Active Substance: CERTOLIZUMAB PEGOL
     Route: 058
  162. CIMZIA [Concomitant]
     Active Substance: CERTOLIZUMAB PEGOL
     Route: 058
  163. CIMZIA [Concomitant]
     Active Substance: CERTOLIZUMAB PEGOL
  164. CIMZIA [Concomitant]
     Active Substance: CERTOLIZUMAB PEGOL
  165. CIMZIA [Concomitant]
     Active Substance: CERTOLIZUMAB PEGOL
     Route: 058
  166. CIMZIA [Concomitant]
     Active Substance: CERTOLIZUMAB PEGOL
  167. CIMZIA [Concomitant]
     Active Substance: CERTOLIZUMAB PEGOL
  168. CIMZIA [Concomitant]
     Active Substance: CERTOLIZUMAB PEGOL
  169. CIMZIA [Concomitant]
     Active Substance: CERTOLIZUMAB PEGOL
  170. CODEINE [Concomitant]
     Active Substance: CODEINE
     Indication: Rheumatoid arthritis
  171. CORTISONE (HYDROCORTISONE) [Concomitant]
     Active Substance: HYDROCORTISONE
     Indication: Rheumatoid arthritis
     Route: 003
  172. CORTISONE (HYDROCORTISONE) [Concomitant]
     Active Substance: HYDROCORTISONE
     Route: 058
  173. CORTISONE (HYDROCORTISONE) [Concomitant]
     Active Substance: HYDROCORTISONE
     Route: 048
  174. CORTISONE (HYDROCORTISONE) [Concomitant]
     Active Substance: HYDROCORTISONE
     Route: 061
  175. CORTISONE (HYDROCORTISONE) [Concomitant]
     Active Substance: HYDROCORTISONE
     Route: 048
  176. CORTISONE (HYDROCORTISONE) [Concomitant]
     Active Substance: HYDROCORTISONE
     Route: 058
  177. CORTISONE (HYDROCORTISONE) [Concomitant]
     Active Substance: HYDROCORTISONE
     Route: 003
  178. CORTISONE (HYDROCORTISONE) [Concomitant]
     Active Substance: HYDROCORTISONE
     Route: 061
  179. CORTISONE (HYDROCORTISONE) [Concomitant]
     Active Substance: HYDROCORTISONE
     Route: 058
  180. CORTISONE (HYDROCORTISONE) [Concomitant]
     Active Substance: HYDROCORTISONE
     Route: 048
  181. CORTISONE (HYDROCORTISONE) [Concomitant]
     Active Substance: HYDROCORTISONE
  182. CORTISONE (HYDROCORTISONE) [Concomitant]
     Active Substance: HYDROCORTISONE
     Route: 048
  183. CORTISONE (HYDROCORTISONE) [Concomitant]
     Active Substance: HYDROCORTISONE
  184. CORTISONE ACETATE [Concomitant]
     Active Substance: CORTISONE ACETATE
     Indication: Rheumatoid arthritis
     Route: 048
  185. CORTISONE ACETATE [Concomitant]
     Active Substance: CORTISONE ACETATE
     Route: 061
  186. CORTISONE ACETATE [Concomitant]
     Active Substance: CORTISONE ACETATE
     Route: 048
  187. CORTISONE ACETATE [Concomitant]
     Active Substance: CORTISONE ACETATE
     Route: 058
  188. CORTISONE ACETATE [Concomitant]
     Active Substance: CORTISONE ACETATE
     Route: 048
  189. CORTISONE ACETATE [Concomitant]
     Active Substance: CORTISONE ACETATE
  190. CORTISONE ACETATE [Concomitant]
     Active Substance: CORTISONE ACETATE
  191. CORTISONE ACETATE [Concomitant]
     Active Substance: CORTISONE ACETATE
  192. COSENTYX [Concomitant]
     Active Substance: SECUKINUMAB
     Indication: Rheumatoid arthritis
  193. COSENTYX [Concomitant]
     Active Substance: SECUKINUMAB
     Indication: Psoriatic arthropathy
     Route: 005
  194. COSENTYX [Concomitant]
     Active Substance: SECUKINUMAB
  195. COSENTYX [Concomitant]
     Active Substance: SECUKINUMAB
     Route: 040
  196. COSENTYX [Concomitant]
     Active Substance: SECUKINUMAB
     Route: 048
  197. COSENTYX [Concomitant]
     Active Substance: SECUKINUMAB
     Route: 005
  198. DESOGESTREL [Concomitant]
     Active Substance: DESOGESTREL
     Indication: Product used for unknown indication
  199. DESOGESTREL AND ETHINYL ESTRADIOL [Concomitant]
     Active Substance: DESOGESTREL\ETHINYL ESTRADIOL
     Indication: Product used for unknown indication
  200. DESOXIMETASONE [Concomitant]
     Active Substance: DESOXIMETASONE
     Indication: Rheumatoid arthritis
     Route: 048
  201. DESOXIMETASONE [Concomitant]
     Active Substance: DESOXIMETASONE
     Route: 003
  202. DESOXIMETASONE [Concomitant]
     Active Substance: DESOXIMETASONE
     Route: 058
  203. DESOXIMETASONE [Concomitant]
     Active Substance: DESOXIMETASONE
     Route: 061
  204. DESOXIMETASONE [Concomitant]
     Active Substance: DESOXIMETASONE
     Route: 048
  205. DESOXIMETASONE [Concomitant]
     Active Substance: DESOXIMETASONE
     Route: 048
  206. DESOXIMETASONE [Concomitant]
     Active Substance: DESOXIMETASONE
     Route: 048
  207. DESOXIMETASONE [Concomitant]
     Active Substance: DESOXIMETASONE
     Route: 048
  208. DESOXIMETASONE [Concomitant]
     Active Substance: DESOXIMETASONE
     Route: 048
  209. DESOXIMETASONE [Concomitant]
     Active Substance: DESOXIMETASONE
     Route: 048
  210. DESOXIMETASONE [Concomitant]
     Active Substance: DESOXIMETASONE
  211. DESOXIMETASONE [Concomitant]
     Active Substance: DESOXIMETASONE
  212. DESOXIMETASONE [Concomitant]
     Active Substance: DESOXIMETASONE
  213. DESOXIMETASONE [Concomitant]
     Active Substance: DESOXIMETASONE
     Route: 058
  214. DESOXIMETASONE [Concomitant]
     Active Substance: DESOXIMETASONE
     Route: 061
  215. DESOXIMETASONE [Concomitant]
     Active Substance: DESOXIMETASONE
     Route: 048
  216. DESOXIMETASONE [Concomitant]
     Active Substance: DESOXIMETASONE
     Route: 048
  217. DESOXIMETASONE [Concomitant]
     Active Substance: DESOXIMETASONE
  218. DESOXIMETASONE [Concomitant]
     Active Substance: DESOXIMETASONE
  219. DESOXIMETASONE [Concomitant]
     Active Substance: DESOXIMETASONE
     Route: 067
  220. DESOXIMETASONE [Concomitant]
     Active Substance: DESOXIMETASONE
     Route: 061
  221. DESOXIMETASONE [Concomitant]
     Active Substance: DESOXIMETASONE
     Route: 061
  222. DESOXIMETASONE [Concomitant]
     Active Substance: DESOXIMETASONE
     Route: 061
  223. DESOXIMETASONE [Concomitant]
     Active Substance: DESOXIMETASONE
  224. DESOXIMETASONE [Concomitant]
     Active Substance: DESOXIMETASONE
  225. DESOXIMETASONE [Concomitant]
     Active Substance: DESOXIMETASONE
  226. DESOXIMETASONE [Concomitant]
     Active Substance: DESOXIMETASONE
  227. DICLOFENAC DIETHYLAMINE [Concomitant]
     Active Substance: DICLOFENAC DIETHYLAMINE
     Indication: Product used for unknown indication
  228. DICLOFENAC POTASSIUM [Concomitant]
     Active Substance: DICLOFENAC POTASSIUM
     Indication: Rheumatoid arthritis
     Route: 048
  229. DICLOFENAC POTASSIUM [Concomitant]
     Active Substance: DICLOFENAC POTASSIUM
     Route: 048
  230. DICLOFENAC POTASSIUM [Concomitant]
     Active Substance: DICLOFENAC POTASSIUM
     Route: 048
  231. DICLOFENAC POTASSIUM [Concomitant]
     Active Substance: DICLOFENAC POTASSIUM
  232. DICLOFENAC POTASSIUM [Concomitant]
     Active Substance: DICLOFENAC POTASSIUM
     Route: 048
  233. DICLOFENAC POTASSIUM [Concomitant]
     Active Substance: DICLOFENAC POTASSIUM
  234. DICLOFENAC POTASSIUM [Concomitant]
     Active Substance: DICLOFENAC POTASSIUM
  235. DICLOFENAC POTASSIUM [Concomitant]
     Active Substance: DICLOFENAC POTASSIUM
  236. DICLOFENAC SODIUM [Concomitant]
     Active Substance: DICLOFENAC SODIUM
     Indication: Rheumatoid arthritis
     Route: 048
  237. DICLOFENAC SODIUM [Concomitant]
     Active Substance: DICLOFENAC SODIUM
     Route: 047
  238. DICLOFENAC SODIUM [Concomitant]
     Active Substance: DICLOFENAC SODIUM
  239. DICLOFENAC SODIUM [Concomitant]
     Active Substance: DICLOFENAC SODIUM
     Route: 058
  240. DICLOFENAC SODIUM [Concomitant]
     Active Substance: DICLOFENAC SODIUM
     Route: 048
  241. DICLOFENAC SODIUM [Concomitant]
     Active Substance: DICLOFENAC SODIUM
     Route: 058
  242. DICLOFENAC SODIUM [Concomitant]
     Active Substance: DICLOFENAC SODIUM
  243. DICLOFENAC SODIUM [Concomitant]
     Active Substance: DICLOFENAC SODIUM
  244. DICLOFENAC SODIUM [Concomitant]
     Active Substance: DICLOFENAC SODIUM
     Route: 048
  245. DICLOFENAC SODIUM [Concomitant]
     Active Substance: DICLOFENAC SODIUM
     Route: 047
  246. ENBREL [Concomitant]
     Active Substance: ETANERCEPT
     Indication: Rheumatoid arthritis
     Route: 058
  247. ENBREL [Concomitant]
     Active Substance: ETANERCEPT
     Indication: Psoriatic arthropathy
     Route: 058
  248. ENBREL [Concomitant]
     Active Substance: ETANERCEPT
     Route: 058
  249. ENBREL [Concomitant]
     Active Substance: ETANERCEPT
     Route: 058
  250. ENBREL [Concomitant]
     Active Substance: ETANERCEPT
  251. ERGOCALCIFEROL [Concomitant]
     Active Substance: ERGOCALCIFEROL
     Indication: Rheumatoid arthritis
  252. ERELZI [Concomitant]
     Active Substance: ETANERCEPT-SZZS
     Indication: Rheumatoid arthritis
     Route: 058
  253. ERELZI [Concomitant]
     Active Substance: ETANERCEPT-SZZS
     Route: 058
  254. ERELZI [Concomitant]
     Active Substance: ETANERCEPT-SZZS
  255. ERELZI [Concomitant]
     Active Substance: ETANERCEPT-SZZS
  256. ERELZI [Concomitant]
     Active Substance: ETANERCEPT-SZZS
  257. ERELZI [Concomitant]
     Active Substance: ETANERCEPT-SZZS
  258. ERELZI [Concomitant]
     Active Substance: ETANERCEPT-SZZS
  259. ERELZI [Concomitant]
     Active Substance: ETANERCEPT-SZZS
  260. ERELZI [Concomitant]
     Active Substance: ETANERCEPT-SZZS
  261. FOLIC ACID [Concomitant]
     Active Substance: FOLIC ACID
     Indication: Rheumatoid arthritis
     Route: 048
  262. FOLIC ACID [Concomitant]
     Active Substance: FOLIC ACID
     Route: 058
  263. FOLIC ACID [Concomitant]
     Active Substance: FOLIC ACID
     Route: 048
  264. FOLIC ACID [Concomitant]
     Active Substance: FOLIC ACID
  265. FOLIC ACID [Concomitant]
     Active Substance: FOLIC ACID
  266. FOLIC ACID [Concomitant]
     Active Substance: FOLIC ACID
     Route: 048
  267. FOLIC ACID [Concomitant]
     Active Substance: FOLIC ACID
     Route: 048
  268. FOLIC ACID [Concomitant]
     Active Substance: FOLIC ACID
  269. FOLIC ACID [Concomitant]
     Active Substance: FOLIC ACID
     Route: 048
  270. FOLIC ACID [Concomitant]
     Active Substance: FOLIC ACID
     Route: 058
  271. FOLIC ACID [Concomitant]
     Active Substance: FOLIC ACID
     Route: 048
  272. FOLIC ACID [Concomitant]
     Active Substance: FOLIC ACID
     Route: 048
  273. FOLIC ACID [Concomitant]
     Active Substance: FOLIC ACID
  274. FOLIC ACID [Concomitant]
     Active Substance: FOLIC ACID
  275. GLUCOSAMINE [Concomitant]
     Active Substance: GLUCOSAMINE
     Indication: Rheumatoid arthritis
     Route: 048
  276. GOLIMUMAB [Concomitant]
     Active Substance: GOLIMUMAB
     Indication: Rheumatoid arthritis
     Route: 058
  277. GOLIMUMAB [Concomitant]
     Active Substance: GOLIMUMAB
  278. HUMIRA [Concomitant]
     Active Substance: ADALIMUMAB
     Indication: Rheumatoid arthritis
     Route: 058
  279. HUMIRA [Concomitant]
     Active Substance: ADALIMUMAB
     Indication: Psoriatic arthropathy
     Route: 058
  280. HUMIRA [Concomitant]
     Active Substance: ADALIMUMAB
     Route: 058
  281. HUMIRA [Concomitant]
     Active Substance: ADALIMUMAB
     Route: 058
  282. HYDROCORTISONE BUTYRATE [Concomitant]
     Active Substance: HYDROCORTISONE BUTYRATE
     Indication: Rheumatoid arthritis
  283. HYDROCORTISONE BUTYRATE [Concomitant]
     Active Substance: HYDROCORTISONE BUTYRATE
     Route: 058
  284. HYDROXYCHLOROQUINE [Concomitant]
     Active Substance: HYDROXYCHLOROQUINE
     Indication: Rheumatoid arthritis
  285. HYDROXYCHLOROQUINE [Concomitant]
     Active Substance: HYDROXYCHLOROQUINE
     Indication: Systemic lupus erythematosus
     Route: 048
  286. HYDROXYCHLOROQUINE [Concomitant]
     Active Substance: HYDROXYCHLOROQUINE
     Route: 048
  287. HYDROXYCHLOROQUINE [Concomitant]
     Active Substance: HYDROXYCHLOROQUINE
  288. HYDROXYCHLOROQUINE [Concomitant]
     Active Substance: HYDROXYCHLOROQUINE
     Route: 048
  289. HYDROXYCHLOROQUINE [Concomitant]
     Active Substance: HYDROXYCHLOROQUINE
  290. HYDROXYCHLOROQUINE [Concomitant]
     Active Substance: HYDROXYCHLOROQUINE
  291. HYDROXYCHLOROQUINE [Concomitant]
     Active Substance: HYDROXYCHLOROQUINE
     Route: 048
  292. HYDROXYCHLOROQUINE [Concomitant]
     Active Substance: HYDROXYCHLOROQUINE
  293. HYDROXYCHLOROQUINE [Concomitant]
     Active Substance: HYDROXYCHLOROQUINE
  294. HYDROXYCHLOROQUINE SULFATE [Concomitant]
     Active Substance: HYDROXYCHLOROQUINE SULFATE
     Indication: Rheumatoid arthritis
     Route: 048
  295. HYDROXYCHLOROQUINE SULFATE [Concomitant]
     Active Substance: HYDROXYCHLOROQUINE SULFATE
     Indication: Systemic lupus erythematosus
  296. HYDROXYCHLOROQUINE SULFATE [Concomitant]
     Active Substance: HYDROXYCHLOROQUINE SULFATE
     Route: 048
  297. HYDROXYCHLOROQUINE SULFATE [Concomitant]
     Active Substance: HYDROXYCHLOROQUINE SULFATE
  298. HYDROXYCHLOROQUINE SULFATE [Concomitant]
     Active Substance: HYDROXYCHLOROQUINE SULFATE
  299. HYDROXYCHLOROQUINE SULFATE [Concomitant]
     Active Substance: HYDROXYCHLOROQUINE SULFATE
     Route: 048
  300. HYDROXYCHLOROQUINE SULFATE [Concomitant]
     Active Substance: HYDROXYCHLOROQUINE SULFATE
     Route: 058
  301. HYDROXYCHLOROQUINE SULFATE [Concomitant]
     Active Substance: HYDROXYCHLOROQUINE SULFATE
     Route: 048
  302. HYDROXYCHLOROQUINE SULFATE [Concomitant]
     Active Substance: HYDROXYCHLOROQUINE SULFATE
  303. HYDROXYCHLOROQUINE SULFATE [Concomitant]
     Active Substance: HYDROXYCHLOROQUINE SULFATE
     Route: 048
  304. HYDROXYCHLOROQUINE SULFATE [Concomitant]
     Active Substance: HYDROXYCHLOROQUINE SULFATE
  305. IBUPROFEN [Concomitant]
     Active Substance: IBUPROFEN
     Indication: Product used for unknown indication
  306. LANSOPRAZOLE [Concomitant]
     Active Substance: LANSOPRAZOLE
     Indication: Rheumatoid arthritis
  307. LEFLUNOMIDE [Concomitant]
     Active Substance: LEFLUNOMIDE
     Indication: Rheumatoid arthritis
  308. LEFLUNOMIDE [Concomitant]
     Active Substance: LEFLUNOMIDE
     Route: 048
  309. LEFLUNOMIDE [Concomitant]
     Active Substance: LEFLUNOMIDE
     Route: 048
  310. LEFLUNOMIDE [Concomitant]
     Active Substance: LEFLUNOMIDE
     Route: 048
  311. LEFLUNOMIDE [Concomitant]
     Active Substance: LEFLUNOMIDE
  312. LEFLUNOMIDE [Concomitant]
     Active Substance: LEFLUNOMIDE
  313. LEFLUNOMIDE [Concomitant]
     Active Substance: LEFLUNOMIDE
  314. LEFLUNOMIDE [Concomitant]
     Active Substance: LEFLUNOMIDE
  315. LEFLUNOMIDE [Concomitant]
     Active Substance: LEFLUNOMIDE
     Route: 048
  316. LEFLUNOMIDE [Concomitant]
     Active Substance: LEFLUNOMIDE
     Route: 048
  317. LEVOTHYROXINE SODIUM [Concomitant]
     Active Substance: LEVOTHYROXINE SODIUM
     Indication: Product used for unknown indication
  318. LISINOPRIL [Concomitant]
     Active Substance: LISINOPRIL
     Indication: Product used for unknown indication
     Route: 048
  319. LORAZEPAM [Concomitant]
     Active Substance: LORAZEPAM
     Indication: Product used for unknown indication
  320. LORAZEPAM [Concomitant]
     Active Substance: LORAZEPAM
  321. MAGNESIUM [Concomitant]
     Active Substance: MAGNESIUM
     Indication: Product used for unknown indication
     Route: 048
  322. MAGNESIUM [Concomitant]
     Active Substance: MAGNESIUM
     Route: 048
  323. MAGNESIUM [Concomitant]
     Active Substance: MAGNESIUM
     Route: 048
  324. MAGNESIUM [Concomitant]
     Active Substance: MAGNESIUM
  325. MELOXICAM [Concomitant]
     Active Substance: MELOXICAM
     Indication: Product used for unknown indication
  326. METHOTREXATE [Concomitant]
     Active Substance: METHOTREXATE
     Indication: Rheumatoid arthritis
     Route: 013
  327. METHOTREXATE [Concomitant]
     Active Substance: METHOTREXATE
     Route: 013
  328. METHOTREXATE [Concomitant]
     Active Substance: METHOTREXATE
     Route: 058
  329. METHOTREXATE [Concomitant]
     Active Substance: METHOTREXATE
  330. METHOTREXATE [Concomitant]
     Active Substance: METHOTREXATE
     Route: 048
  331. METHOTREXATE [Concomitant]
     Active Substance: METHOTREXATE
     Route: 058
  332. METHOTREXATE [Concomitant]
     Active Substance: METHOTREXATE
     Route: 048
  333. METHOTREXATE [Concomitant]
     Active Substance: METHOTREXATE
  334. METHOTREXATE [Concomitant]
     Active Substance: METHOTREXATE
     Route: 048
  335. METHOTREXATE [Concomitant]
     Active Substance: METHOTREXATE
  336. METHOTREXATE [Concomitant]
     Active Substance: METHOTREXATE
     Route: 048
  337. METHOTREXATE [Concomitant]
     Active Substance: METHOTREXATE
  338. METHOTREXATE [Concomitant]
     Active Substance: METHOTREXATE
     Route: 048
  339. METHOTREXATE [Concomitant]
     Active Substance: METHOTREXATE
     Route: 013
  340. METHOTREXATE [Concomitant]
     Active Substance: METHOTREXATE
     Route: 058
  341. METHOTREXATE [Concomitant]
     Active Substance: METHOTREXATE
     Route: 048
  342. METHOTREXATE [Concomitant]
     Active Substance: METHOTREXATE
     Route: 048
  343. METHOTREXATE [Concomitant]
     Active Substance: METHOTREXATE
     Route: 058
  344. METHOTREXATE [Concomitant]
     Active Substance: METHOTREXATE
     Route: 058
  345. METHOTREXATE [Concomitant]
     Active Substance: METHOTREXATE
     Route: 058
  346. METHOTREXATE [Concomitant]
     Active Substance: METHOTREXATE
  347. METHOTREXATE [Concomitant]
     Active Substance: METHOTREXATE
     Route: 048
  348. METHOTREXATE [Concomitant]
     Active Substance: METHOTREXATE
     Route: 048
  349. METHOTREXATE [Concomitant]
     Active Substance: METHOTREXATE
     Route: 048
  350. METHOTREXATE [Concomitant]
     Active Substance: METHOTREXATE
  351. METHOTREXATE [Concomitant]
     Active Substance: METHOTREXATE
  352. METHOTREXATE [Concomitant]
     Active Substance: METHOTREXATE
  353. METHOTREXATE [Concomitant]
     Active Substance: METHOTREXATE
  354. METHOTREXATE [Concomitant]
     Active Substance: METHOTREXATE
  355. METHOTREXATE [Concomitant]
     Active Substance: METHOTREXATE
  356. METHOTREXATE [Concomitant]
     Active Substance: METHOTREXATE
  357. METHOTREXATE [Concomitant]
     Active Substance: METHOTREXATE
  358. METHOTREXATE [Concomitant]
     Active Substance: METHOTREXATE
  359. METHOTREXATE [Concomitant]
     Active Substance: METHOTREXATE
  360. METHOTREXATE [Concomitant]
     Active Substance: METHOTREXATE
  361. METHOTREXATE [Concomitant]
     Active Substance: METHOTREXATE
  362. METHOTREXATE [Concomitant]
     Active Substance: METHOTREXATE
  363. MYCOPHENOLATE MOFETIL [Concomitant]
     Active Substance: MYCOPHENOLATE MOFETIL
     Indication: Rheumatoid arthritis
  364. NAPROXEN SODIUM [Concomitant]
     Active Substance: NAPROXEN SODIUM
     Indication: Rheumatoid arthritis
  365. NAPROXEN SODIUM [Concomitant]
     Active Substance: NAPROXEN SODIUM
     Indication: Headache
  366. NAPROXEN SODIUM [Concomitant]
     Active Substance: NAPROXEN SODIUM
  367. NAPROXEN SODIUM [Concomitant]
     Active Substance: NAPROXEN SODIUM
  368. NAPROXEN SODIUM [Concomitant]
     Active Substance: NAPROXEN SODIUM
  369. OXYCODONE [Concomitant]
     Active Substance: OXYCODONE
     Indication: Product used for unknown indication
  370. OXYCODONE HYDROCHLORIDE [Concomitant]
     Active Substance: OXYCODONE HYDROCHLORIDE
     Indication: Product used for unknown indication
  371. OXYCODONE HYDROCHLORIDE [Concomitant]
     Active Substance: OXYCODONE HYDROCHLORIDE
  372. OXYCODONE TEREPHTHALATE [Concomitant]
     Active Substance: OXYCODONE TEREPHTHALATE
     Indication: Product used for unknown indication
     Route: 016
  373. OXYCODONE TEREPHTHALATE [Concomitant]
     Active Substance: OXYCODONE TEREPHTHALATE
  374. PANTOPRAZOLE [Concomitant]
     Active Substance: PANTOPRAZOLE
     Indication: Product used for unknown indication
  375. PANTOPRAZOLE SODIUM [Concomitant]
     Active Substance: PANTOPRAZOLE SODIUM
     Indication: Dyspepsia
  376. PANTOPRAZOLE SODIUM [Concomitant]
     Active Substance: PANTOPRAZOLE SODIUM
     Route: 016
  377. PANTOPRAZOLE SODIUM [Concomitant]
     Active Substance: PANTOPRAZOLE SODIUM
  378. PERIOGARD [Concomitant]
     Active Substance: CHLORHEXIDINE GLUCONATE
     Indication: Product used for unknown indication
     Route: 016
  379. PERIOGARD [Concomitant]
     Active Substance: CHLORHEXIDINE GLUCONATE
  380. PERIOGARD [Concomitant]
     Active Substance: CHLORHEXIDINE GLUCONATE
     Route: 002
  381. PERIOGARD [Concomitant]
     Active Substance: CHLORHEXIDINE GLUCONATE
     Route: 016
  382. PERIOGARD [Concomitant]
     Active Substance: CHLORHEXIDINE GLUCONATE
     Route: 002
  383. PHTHALYLSULFATHIAZOLE [Concomitant]
     Active Substance: PHTHALYLSULFATHIAZOLE
     Indication: Rheumatoid arthritis
     Route: 048
  384. PHTHALYLSULFATHIAZOLE [Concomitant]
     Active Substance: PHTHALYLSULFATHIAZOLE
  385. PHTHALYLSULFATHIAZOLE [Concomitant]
     Active Substance: PHTHALYLSULFATHIAZOLE
     Route: 016
  386. PHTHALYLSULFATHIAZOLE [Concomitant]
     Active Substance: PHTHALYLSULFATHIAZOLE
     Route: 042
  387. PHTHALYLSULFATHIAZOLE [Concomitant]
     Active Substance: PHTHALYLSULFATHIAZOLE
     Route: 048
  388. PHTHALYLSULFATHIAZOLE [Concomitant]
     Active Substance: PHTHALYLSULFATHIAZOLE
     Route: 048
  389. PHTHALYLSULFATHIAZOLE [Concomitant]
     Active Substance: PHTHALYLSULFATHIAZOLE
  390. PHTHALYLSULFATHIAZOLE [Concomitant]
     Active Substance: PHTHALYLSULFATHIAZOLE
     Route: 048
  391. PHTHALYLSULFATHIAZOLE [Concomitant]
     Active Substance: PHTHALYLSULFATHIAZOLE
  392. PHTHALYLSULFATHIAZOLE [Concomitant]
     Active Substance: PHTHALYLSULFATHIAZOLE
  393. PIROXICAM [Concomitant]
     Active Substance: PIROXICAM
     Indication: Product used for unknown indication
  394. PREDNISOLONE [Concomitant]
     Active Substance: PREDNISOLONE
     Indication: Product used for unknown indication
  395. PREDNISONE [Concomitant]
     Active Substance: PREDNISONE
     Indication: Rheumatoid arthritis
  396. PREDNISONE [Concomitant]
     Active Substance: PREDNISONE
     Indication: Psoriatic arthropathy
     Route: 048
  397. PREDNISONE [Concomitant]
     Active Substance: PREDNISONE
     Indication: Condition aggravated
     Route: 048
  398. PREDNISONE [Concomitant]
     Active Substance: PREDNISONE
     Route: 048
  399. PREDNISONE [Concomitant]
     Active Substance: PREDNISONE
     Route: 040
  400. PREDNISONE [Concomitant]
     Active Substance: PREDNISONE
  401. PREDNISONE [Concomitant]
     Active Substance: PREDNISONE
     Route: 048
  402. PREDNISONE [Concomitant]
     Active Substance: PREDNISONE
  403. PREDNISONE [Concomitant]
     Active Substance: PREDNISONE
  404. PREDNISONE [Concomitant]
     Active Substance: PREDNISONE
  405. PREDNISONE [Concomitant]
     Active Substance: PREDNISONE
  406. PREDNISONE [Concomitant]
     Active Substance: PREDNISONE
  407. PREGABALIN [Concomitant]
     Active Substance: PREGABALIN
     Indication: Product used for unknown indication
  408. PREGABALIN [Concomitant]
     Active Substance: PREGABALIN
  409. PSEUDOEPHEDRINE [Concomitant]
     Active Substance: PSEUDOEPHEDRINE
     Indication: Rheumatoid arthritis
  410. PSEUDOEPHEDRINE [Concomitant]
     Active Substance: PSEUDOEPHEDRINE
  411. PSEUDOEPHEDRINE HYDROCHLORIDE [Concomitant]
     Active Substance: PSEUDOEPHEDRINE HYDROCHLORIDE
     Indication: Rheumatoid arthritis
  412. PSEUDOEPHEDRINE HYDROCHLORIDE [Concomitant]
     Active Substance: PSEUDOEPHEDRINE HYDROCHLORIDE
  413. PSEUDOEPHEDRINE HYDROCHLORIDE [Concomitant]
     Active Substance: PSEUDOEPHEDRINE HYDROCHLORIDE
  414. QUETIAPINE [Concomitant]
     Active Substance: QUETIAPINE
     Indication: Product used for unknown indication
  415. QUETIAPINE FUMARATE [Concomitant]
     Active Substance: QUETIAPINE FUMARATE
     Indication: Product used for unknown indication
  416. RAMIPRIL [Concomitant]
     Active Substance: RAMIPRIL
     Indication: Product used for unknown indication
  417. RAMIPRIL [Concomitant]
     Active Substance: RAMIPRIL
     Route: 042
  418. RAMIPRIL [Concomitant]
     Active Substance: RAMIPRIL
     Route: 016
  419. RAMIPRIL [Concomitant]
     Active Substance: RAMIPRIL
     Route: 042
  420. REMICADE [Concomitant]
     Active Substance: INFLIXIMAB
     Indication: Rheumatoid arthritis
     Route: 042
  421. REMICADE [Concomitant]
     Active Substance: INFLIXIMAB
     Indication: Psoriasis
     Route: 042
  422. REMICADE [Concomitant]
     Active Substance: INFLIXIMAB
     Indication: Crohn^s disease
  423. REMICADE [Concomitant]
     Active Substance: INFLIXIMAB
     Indication: Colitis ulcerative
     Route: 042
  424. REMICADE [Concomitant]
     Active Substance: INFLIXIMAB
     Indication: Arthropathy
  425. REMICADE [Concomitant]
     Active Substance: INFLIXIMAB
     Indication: Ankylosing spondylitis
  426. RISEDRONATE SODIUM [Concomitant]
     Active Substance: RISEDRONATE SODIUM
     Indication: Product used for unknown indication
  427. RITUXIMAB [Concomitant]
     Active Substance: RITUXIMAB
     Indication: Rheumatoid arthritis
     Route: 041
  428. RITUXIMAB [Concomitant]
     Active Substance: RITUXIMAB
     Indication: Abdominal discomfort
     Route: 058
  429. RITUXIMAB [Concomitant]
     Active Substance: RITUXIMAB
     Route: 042
  430. RITUXIMAB [Concomitant]
     Active Substance: RITUXIMAB
     Route: 058
  431. RITUXIMAB [Concomitant]
     Active Substance: RITUXIMAB
     Route: 048
  432. RITUXIMAB [Concomitant]
     Active Substance: RITUXIMAB
     Route: 048
  433. RITUXIMAB [Concomitant]
     Active Substance: RITUXIMAB
     Route: 048
  434. RITUXIMAB [Concomitant]
     Active Substance: RITUXIMAB
     Route: 040
  435. RITUXIMAB [Concomitant]
     Active Substance: RITUXIMAB
     Route: 048
  436. RITUXIMAB [Concomitant]
     Active Substance: RITUXIMAB
     Route: 040
  437. RITUXIMAB [Concomitant]
     Active Substance: RITUXIMAB
  438. RITUXIMAB [Concomitant]
     Active Substance: RITUXIMAB
     Route: 058
  439. RITUXIMAB [Concomitant]
     Active Substance: RITUXIMAB
  440. RITUXIMAB [Concomitant]
     Active Substance: RITUXIMAB
  441. RITUXIMAB [Concomitant]
     Active Substance: RITUXIMAB
  442. RITUXIMAB [Concomitant]
     Active Substance: RITUXIMAB
  443. RITUXIMAB [Concomitant]
     Active Substance: RITUXIMAB
     Route: 016
  444. RITUXIMAB [Concomitant]
     Active Substance: RITUXIMAB
     Route: 041
  445. RITUXIMAB [Concomitant]
     Active Substance: RITUXIMAB
     Route: 042
  446. RITUXIMAB [Concomitant]
     Active Substance: RITUXIMAB
     Route: 058
  447. RITUXIMAB [Concomitant]
     Active Substance: RITUXIMAB
  448. RITUXIMAB [Concomitant]
     Active Substance: RITUXIMAB
  449. FISH OIL [Concomitant]
     Active Substance: FISH OIL
     Indication: Product used for unknown indication
  450. FISH OIL [Concomitant]
     Active Substance: FISH OIL
  451. SIMPONI [Concomitant]
     Active Substance: GOLIMUMAB
     Indication: Rheumatoid arthritis
     Route: 058
  452. SIMPONI [Concomitant]
     Active Substance: GOLIMUMAB
     Indication: Psoriatic arthropathy
     Route: 052
  453. SIMPONI [Concomitant]
     Active Substance: GOLIMUMAB
     Route: 042
  454. SIMPONI [Concomitant]
     Active Substance: GOLIMUMAB
     Route: 042
  455. SIMPONI [Concomitant]
     Active Substance: GOLIMUMAB
     Route: 058
  456. SIMPONI [Concomitant]
     Active Substance: GOLIMUMAB
  457. SIMPONI [Concomitant]
     Active Substance: GOLIMUMAB
     Route: 058
  458. SIMPONI [Concomitant]
     Active Substance: GOLIMUMAB
  459. SIMPONI [Concomitant]
     Active Substance: GOLIMUMAB
  460. STELARA [Concomitant]
     Active Substance: USTEKINUMAB
     Indication: Psoriatic arthropathy
     Route: 058
  461. STELARA [Concomitant]
     Active Substance: USTEKINUMAB
     Indication: Rheumatoid arthritis
  462. STELARA [Concomitant]
     Active Substance: USTEKINUMAB
     Route: 058
  463. STELARA [Concomitant]
     Active Substance: USTEKINUMAB
     Route: 042
  464. STELARA [Concomitant]
     Active Substance: USTEKINUMAB
  465. STELARA [Concomitant]
     Active Substance: USTEKINUMAB
     Route: 058
  466. STELARA [Concomitant]
     Active Substance: USTEKINUMAB
  467. STELARA [Concomitant]
     Active Substance: USTEKINUMAB
  468. SULFASALAZINE [Concomitant]
     Active Substance: SULFASALAZINE
     Indication: Rheumatoid arthritis
     Route: 048
  469. SULFASALAZINE [Concomitant]
     Active Substance: SULFASALAZINE
     Route: 048
  470. SULFASALAZINE [Concomitant]
     Active Substance: SULFASALAZINE
  471. SULFASALAZINE [Concomitant]
     Active Substance: SULFASALAZINE
     Route: 048
  472. SULFASALAZINE [Concomitant]
     Active Substance: SULFASALAZINE
  473. SULFASALAZINE [Concomitant]
     Active Substance: SULFASALAZINE
     Route: 048
  474. SULFASALAZINE [Concomitant]
     Active Substance: SULFASALAZINE
     Route: 048
  475. SULFASALAZINE [Concomitant]
     Active Substance: SULFASALAZINE
     Route: 048
  476. SULFASALAZINE [Concomitant]
     Active Substance: SULFASALAZINE
     Route: 048
  477. SULFASALAZINE [Concomitant]
     Active Substance: SULFASALAZINE
     Route: 048
  478. SULFASALAZINE [Concomitant]
     Active Substance: SULFASALAZINE
     Route: 048
  479. SULFASALAZINE [Concomitant]
     Active Substance: SULFASALAZINE
  480. SULFASALAZINE [Concomitant]
     Active Substance: SULFASALAZINE
  481. SULFASALAZINE [Concomitant]
     Active Substance: SULFASALAZINE
  482. SULFASALAZINE [Concomitant]
     Active Substance: SULFASALAZINE
  483. SULFASALAZINE [Concomitant]
     Active Substance: SULFASALAZINE
  484. SULFASALAZINE [Concomitant]
     Active Substance: SULFASALAZINE
  485. SULFASALAZINE [Concomitant]
     Active Substance: SULFASALAZINE
  486. SULFASALAZINE [Concomitant]
     Active Substance: SULFASALAZINE
  487. SULFASALAZINE [Concomitant]
     Active Substance: SULFASALAZINE
  488. SULFASALAZINE [Concomitant]
     Active Substance: SULFASALAZINE
  489. SULFASALAZINE [Concomitant]
     Active Substance: SULFASALAZINE
  490. SULFASALAZINE [Concomitant]
     Active Substance: SULFASALAZINE
  491. SULFASALAZINE [Concomitant]
     Active Substance: SULFASALAZINE
  492. SULFASALAZINE [Concomitant]
     Active Substance: SULFASALAZINE
  493. SULFASALAZINE [Concomitant]
     Active Substance: SULFASALAZINE
  494. TOCILIZUMAB [Concomitant]
     Active Substance: TOCILIZUMAB
     Indication: Rheumatoid arthritis
     Route: 058
  495. TOCILIZUMAB [Concomitant]
     Active Substance: TOCILIZUMAB
  496. TOCILIZUMAB [Concomitant]
     Active Substance: TOCILIZUMAB
     Route: 042
  497. TOCILIZUMAB [Concomitant]
     Active Substance: TOCILIZUMAB
     Route: 042
  498. TOCILIZUMAB [Concomitant]
     Active Substance: TOCILIZUMAB
     Route: 042
  499. TOCILIZUMAB [Concomitant]
     Active Substance: TOCILIZUMAB
     Route: 058
  500. TOCILIZUMAB [Concomitant]
     Active Substance: TOCILIZUMAB
     Route: 058
  501. TOCILIZUMAB [Concomitant]
     Active Substance: TOCILIZUMAB
     Route: 042
  502. TOCILIZUMAB [Concomitant]
     Active Substance: TOCILIZUMAB
  503. TOCILIZUMAB [Concomitant]
     Active Substance: TOCILIZUMAB
     Route: 016
  504. TOCILIZUMAB [Concomitant]
     Active Substance: TOCILIZUMAB
     Route: 048
  505. TOCILIZUMAB [Concomitant]
     Active Substance: TOCILIZUMAB
     Route: 058
  506. TOFACITINIB [Concomitant]
     Active Substance: TOFACITINIB
     Indication: Product used for unknown indication
  507. TOFACITINIB CITRATE [Concomitant]
     Active Substance: TOFACITINIB CITRATE
     Indication: Product used for unknown indication
  508. TOFACITINIB CITRATE [Concomitant]
     Active Substance: TOFACITINIB CITRATE
  509. TOFACITINIB CITRATE [Concomitant]
     Active Substance: TOFACITINIB CITRATE
     Route: 058
  510. TOFACITINIB CITRATE [Concomitant]
     Active Substance: TOFACITINIB CITRATE
     Route: 048
  511. TOFACITINIB CITRATE [Concomitant]
     Active Substance: TOFACITINIB CITRATE
     Route: 048
  512. TOFACITINIB CITRATE [Concomitant]
     Active Substance: TOFACITINIB CITRATE
  513. TYLENOL [Concomitant]
     Active Substance: ACETAMINOPHEN
     Indication: Product used for unknown indication
  514. VITAMIN C [Concomitant]
     Active Substance: ASCORBIC ACID
     Indication: Product used for unknown indication
     Route: 016
  515. VITAMIN C [Concomitant]
     Active Substance: ASCORBIC ACID
     Route: 016
  516. VITAMIN C [Concomitant]
     Active Substance: ASCORBIC ACID
  517. VITAMIN D3 [Concomitant]
     Active Substance: CHOLECALCIFEROL
     Indication: Product used for unknown indication
  518. VITAMIN D3 [Concomitant]
     Active Substance: CHOLECALCIFEROL
     Route: 058
  519. CHLORAPREP [Concomitant]
     Active Substance: CHLORHEXIDINE GLUCONATE\ISOPROPYL ALCOHOL
     Indication: Rheumatoid arthritis
  520. CHLORAPREP [Concomitant]
     Active Substance: CHLORHEXIDINE GLUCONATE\ISOPROPYL ALCOHOL
     Route: 061
  521. CHLORAPREP [Concomitant]
     Active Substance: CHLORHEXIDINE GLUCONATE\ISOPROPYL ALCOHOL
  522. DOXYCYCLINE [Concomitant]
     Active Substance: DOXYCYCLINE
     Indication: Product used for unknown indication
  523. CELECOXIB [Concomitant]
     Active Substance: CELECOXIB
     Indication: Arthritis
  524. CELECOXIB [Concomitant]
     Active Substance: CELECOXIB
     Route: 048
  525. CELECOXIB [Concomitant]
     Active Substance: CELECOXIB
     Route: 058
  526. CELECOXIB [Concomitant]
     Active Substance: CELECOXIB
  527. CELECOXIB [Concomitant]
     Active Substance: CELECOXIB
  528. CELECOXIB [Concomitant]
     Active Substance: CELECOXIB
  529. CELECOXIB [Concomitant]
     Active Substance: CELECOXIB
  530. CELECOXIB [Concomitant]
     Active Substance: CELECOXIB
  531. CELECOXIB [Concomitant]
     Active Substance: CELECOXIB
  532. FLUMETHASONE PIVALATE [Concomitant]
     Active Substance: FLUMETHASONE PIVALATE
     Indication: Rheumatoid arthritis
     Route: 058
  533. FLUMETHASONE PIVALATE [Concomitant]
     Active Substance: FLUMETHASONE PIVALATE
  534. FLUMETHASONE PIVALATE [Concomitant]
     Active Substance: FLUMETHASONE PIVALATE
  535. INFLIXIMAB [Concomitant]
     Active Substance: INFLIXIMAB
     Indication: Rheumatoid arthritis
  536. INFLIXIMAB [Concomitant]
     Active Substance: INFLIXIMAB
     Indication: Psoriatic arthropathy
  537. INFLIXIMAB [Concomitant]
     Active Substance: INFLIXIMAB
     Indication: Colitis ulcerative
     Route: 040
  538. INFLIXIMAB [Concomitant]
     Active Substance: INFLIXIMAB
     Route: 040
  539. INFLIXIMAB [Concomitant]
     Active Substance: INFLIXIMAB
     Route: 040
  540. INFLIXIMAB [Concomitant]
     Active Substance: INFLIXIMAB
  541. INFLIXIMAB [Concomitant]
     Active Substance: INFLIXIMAB
  542. INFLIXIMAB [Concomitant]
     Active Substance: INFLIXIMAB
  543. INFLIXIMAB [Concomitant]
     Active Substance: INFLIXIMAB
  544. ISOPROPYL ALCOHOL [Concomitant]
     Active Substance: ISOPROPYL ALCOHOL
     Indication: Rheumatoid arthritis
     Route: 061
  545. ISOPROPYL ALCOHOL [Concomitant]
     Active Substance: ISOPROPYL ALCOHOL
     Route: 058
  546. ISOPROPYL ALCOHOL [Concomitant]
     Active Substance: ISOPROPYL ALCOHOL
  547. OTEZLA [Concomitant]
     Active Substance: APREMILAST
     Indication: Rheumatoid arthritis
     Route: 048
  548. OTEZLA [Concomitant]
     Active Substance: APREMILAST
     Indication: Psoriasis
     Route: 048
  549. OTEZLA [Concomitant]
     Active Substance: APREMILAST
     Route: 042
  550. OTEZLA [Concomitant]
     Active Substance: APREMILAST
     Route: 048
  551. OTEZLA [Concomitant]
     Active Substance: APREMILAST
     Route: 048
  552. OTEZLA [Concomitant]
     Active Substance: APREMILAST
  553. OTEZLA [Concomitant]
     Active Substance: APREMILAST
  554. HYDROCORTISONE SODIUM SUCCINATE [Concomitant]
     Active Substance: HYDROCORTISONE SODIUM SUCCINATE
     Indication: Rheumatoid arthritis
     Route: 061
  555. HYDROCORTISONE SODIUM SUCCINATE [Concomitant]
     Active Substance: HYDROCORTISONE SODIUM SUCCINATE
  556. HYDROCORTISONE SODIUM SUCCINATE [Concomitant]
     Active Substance: HYDROCORTISONE SODIUM SUCCINATE
     Route: 058
  557. HYDROCORTISONE SODIUM SUCCINATE [Concomitant]
     Active Substance: HYDROCORTISONE SODIUM SUCCINATE
     Route: 058
  558. CETIRIZINE HYDROCHLORIDE\PSEUDOEPHEDRINE HYDROCHLORIDE [Concomitant]
     Active Substance: CETIRIZINE HYDROCHLORIDE\PSEUDOEPHEDRINE HYDROCHLORIDE
     Indication: Rheumatoid arthritis
  559. CETIRIZINE HYDROCHLORIDE\PSEUDOEPHEDRINE HYDROCHLORIDE [Concomitant]
     Active Substance: CETIRIZINE HYDROCHLORIDE\PSEUDOEPHEDRINE HYDROCHLORIDE
  560. CETIRIZINE HYDROCHLORIDE\PSEUDOEPHEDRINE HYDROCHLORIDE [Concomitant]
     Active Substance: CETIRIZINE HYDROCHLORIDE\PSEUDOEPHEDRINE HYDROCHLORIDE
     Route: 048
  561. CETIRIZINE HYDROCHLORIDE\PSEUDOEPHEDRINE HYDROCHLORIDE [Concomitant]
     Active Substance: CETIRIZINE HYDROCHLORIDE\PSEUDOEPHEDRINE HYDROCHLORIDE
  562. CETIRIZINE HYDROCHLORIDE\PSEUDOEPHEDRINE HYDROCHLORIDE [Concomitant]
     Active Substance: CETIRIZINE HYDROCHLORIDE\PSEUDOEPHEDRINE HYDROCHLORIDE
  563. CETIRIZINE HYDROCHLORIDE\PSEUDOEPHEDRINE HYDROCHLORIDE [Concomitant]
     Active Substance: CETIRIZINE HYDROCHLORIDE\PSEUDOEPHEDRINE HYDROCHLORIDE
  564. CETIRIZINE HYDROCHLORIDE\PSEUDOEPHEDRINE HYDROCHLORIDE [Concomitant]
     Active Substance: CETIRIZINE HYDROCHLORIDE\PSEUDOEPHEDRINE HYDROCHLORIDE
  565. CETIRIZINE HYDROCHLORIDE\PSEUDOEPHEDRINE HYDROCHLORIDE [Concomitant]
     Active Substance: CETIRIZINE HYDROCHLORIDE\PSEUDOEPHEDRINE HYDROCHLORIDE
  566. CETIRIZINE HYDROCHLORIDE [Concomitant]
     Active Substance: CETIRIZINE HYDROCHLORIDE
     Indication: Rheumatoid arthritis
     Route: 048
  567. CETIRIZINE HYDROCHLORIDE [Concomitant]
     Active Substance: CETIRIZINE HYDROCHLORIDE
  568. CETIRIZINE HYDROCHLORIDE [Concomitant]
     Active Substance: CETIRIZINE HYDROCHLORIDE
  569. CETIRIZINE HYDROCHLORIDE [Concomitant]
     Active Substance: CETIRIZINE HYDROCHLORIDE
  570. CETIRIZINE HYDROCHLORIDE [Concomitant]
     Active Substance: CETIRIZINE HYDROCHLORIDE
  571. CETIRIZINE HYDROCHLORIDE [Concomitant]
     Active Substance: CETIRIZINE HYDROCHLORIDE
  572. SULFASALAZINE [Concomitant]
     Active Substance: SULFASALAZINE
     Indication: Rheumatoid arthritis
     Route: 048
  573. SULFASALAZINE [Concomitant]
     Active Substance: SULFASALAZINE
     Route: 048
  574. SULFASALAZINE [Concomitant]
     Active Substance: SULFASALAZINE
     Route: 048
  575. SULFASALAZINE [Concomitant]
     Active Substance: SULFASALAZINE
     Route: 048
  576. SULFASALAZINE [Concomitant]
     Active Substance: SULFASALAZINE
     Route: 048
  577. SULFASALAZINE [Concomitant]
     Active Substance: SULFASALAZINE
  578. SULFAMETHOXAZOLE [Concomitant]
     Active Substance: SULFAMETHOXAZOLE
     Indication: Product used for unknown indication
  579. SULFAMETHOXAZOLE\TRIMETHOPRIM [Concomitant]
     Active Substance: SULFAMETHOXAZOLE\TRIMETHOPRIM
     Indication: Product used for unknown indication
  580. CHLORHEXIDINE GLUCONATE\ISOPROPYL ALCOHOL [Concomitant]
     Active Substance: CHLORHEXIDINE GLUCONATE\ISOPROPYL ALCOHOL
     Indication: Product used for unknown indication
     Route: 002
  581. CHLORHEXIDINE GLUCONATE\ISOPROPYL ALCOHOL [Concomitant]
     Active Substance: CHLORHEXIDINE GLUCONATE\ISOPROPYL ALCOHOL
     Route: 048
  582. CHLORHEXIDINE GLUCONATE\ISOPROPYL ALCOHOL [Concomitant]
     Active Substance: CHLORHEXIDINE GLUCONATE\ISOPROPYL ALCOHOL
     Route: 061
  583. CHOLECALCIFEROL [Concomitant]
     Active Substance: CHOLECALCIFEROL
     Indication: Rheumatoid arthritis
  584. CHOLECALCIFEROL [Concomitant]
     Active Substance: CHOLECALCIFEROL
  585. CHOLECALCIFEROL [Concomitant]
     Active Substance: CHOLECALCIFEROL
     Route: 016
  586. FOSAMAX [Concomitant]
     Active Substance: ALENDRONATE SODIUM
     Indication: Product used for unknown indication
     Route: 048
  587. FLUMETHASONE PIVALATE [Concomitant]
     Active Substance: FLUMETHASONE PIVALATE
     Indication: Rheumatoid arthritis
     Route: 058
  588. LYRICA [Concomitant]
     Active Substance: PREGABALIN
     Indication: Product used for unknown indication
     Route: 048
  589. NAPROXEN [Concomitant]
     Active Substance: NAPROXEN
     Indication: Rheumatoid arthritis
  590. NEOMYCIN [Concomitant]
     Active Substance: NEOMYCIN
     Indication: Product used for unknown indication
  591. TRAMADOL HYDROCHLORIDE [Concomitant]
     Active Substance: TRAMADOL HYDROCHLORIDE
     Indication: Product used for unknown indication
  592. TRAMADOL HYDROCHLORIDE [Concomitant]
     Active Substance: TRAMADOL HYDROCHLORIDE
     Route: 013
  593. TRIAMCINOLONE ACETONIDE [Concomitant]
     Active Substance: TRIAMCINOLONE ACETONIDE
     Indication: Rheumatoid arthritis
     Route: 014
  594. TRIAMCINOLONE ACETONIDE [Concomitant]
     Active Substance: TRIAMCINOLONE ACETONIDE
     Route: 035
  595. DICLOFENAC DIETHYLAMINE [Concomitant]
     Active Substance: DICLOFENAC DIETHYLAMINE
     Indication: Product used for unknown indication
  596. DICLOFENAC DIETHYLAMINE [Concomitant]
     Active Substance: DICLOFENAC DIETHYLAMINE
  597. PREDNISONE [Concomitant]
     Active Substance: PREDNISONE
     Indication: Rheumatoid arthritis
  598. PREDNISONE [Concomitant]
     Active Substance: PREDNISONE
     Route: 048
  599. XELJANZ [Concomitant]
     Active Substance: TOFACITINIB CITRATE
     Indication: Rheumatoid arthritis
     Route: 048
  600. XELJANZ [Concomitant]
     Active Substance: TOFACITINIB CITRATE
     Indication: Psoriatic arthropathy
  601. XELJANZ [Concomitant]
     Active Substance: TOFACITINIB CITRATE
     Route: 048
  602. XELJANZ [Concomitant]
     Active Substance: TOFACITINIB CITRATE
  603. XELJANZ [Concomitant]
     Active Substance: TOFACITINIB CITRATE
     Route: 048
  604. XELJANZ [Concomitant]
     Active Substance: TOFACITINIB CITRATE
  605. XELJANZ [Concomitant]
     Active Substance: TOFACITINIB CITRATE
  606. ALENDRONATE SODIUM [Concomitant]
     Active Substance: ALENDRONATE SODIUM
     Indication: Rheumatoid arthritis
  607. ALENDRONATE SODIUM [Concomitant]
     Active Substance: ALENDRONATE SODIUM
     Route: 048
  608. ALENDRONATE SODIUM [Concomitant]
     Active Substance: ALENDRONATE SODIUM
     Route: 048
  609. ALENDRONATE SODIUM [Concomitant]
     Active Substance: ALENDRONATE SODIUM
  610. ASCORBIC ACID [Concomitant]
     Active Substance: ASCORBIC ACID
     Indication: Product used for unknown indication
  611. CALCIUM CARBONATE\CALCIUM GLUCONATE [Concomitant]
     Active Substance: CALCIUM CARBONATE\CALCIUM GLUCONATE
     Indication: Product used for unknown indication
  612. CALCIUM GLUBIONATE [Concomitant]
     Active Substance: CALCIUM GLUBIONATE
     Indication: Product used for unknown indication
  613. DEXTROMETHORPHAN HYDROBROMIDE [Concomitant]
     Active Substance: DEXTROMETHORPHAN HYDROBROMIDE
     Indication: Product used for unknown indication
  614. DICLOFENAC [Concomitant]
     Active Substance: DICLOFENAC
     Indication: Product used for unknown indication
     Route: 047
  615. DICLOFENAC [Concomitant]
     Active Substance: DICLOFENAC
  616. DICLOFENAC [Concomitant]
     Active Substance: DICLOFENAC
  617. ETANERCEPT [Concomitant]
     Active Substance: ETANERCEPT
     Indication: Rheumatoid arthritis
     Route: 058
  618. ETANERCEPT [Concomitant]
     Active Substance: ETANERCEPT
     Route: 058
  619. ETANERCEPT [Concomitant]
     Active Substance: ETANERCEPT
  620. ETANERCEPT [Concomitant]
     Active Substance: ETANERCEPT
     Route: 058
  621. ETANERCEPT [Concomitant]
     Active Substance: ETANERCEPT
     Route: 058
  622. ETANERCEPT [Concomitant]
     Active Substance: ETANERCEPT
     Route: 058
  623. ETANERCEPT [Concomitant]
     Active Substance: ETANERCEPT
  624. ETANERCEPT [Concomitant]
     Active Substance: ETANERCEPT
     Route: 058
  625. HYDROCORTISONE ACETATE [Concomitant]
     Active Substance: HYDROCORTISONE ACETATE
     Indication: Rheumatoid arthritis
     Route: 003
  626. HYDROCORTISONE ACETATE [Concomitant]
     Active Substance: HYDROCORTISONE ACETATE
  627. HYDROCORTISONE ACETATE [Concomitant]
     Active Substance: HYDROCORTISONE ACETATE
  628. OXYCODONE AND ACETAMINOPHEN [Concomitant]
     Active Substance: ACETAMINOPHEN\OXYCODONE HYDROCHLORIDE
     Indication: Product used for unknown indication
  629. ZOPICLONE [Concomitant]
     Active Substance: ZOPICLONE
     Indication: Product used for unknown indication
  630. ACETAMINOPHEN AND CODEINE [Concomitant]
     Active Substance: ACETAMINOPHEN\CODEINE PHOSPHATE
     Indication: Product used for unknown indication
  631. ALENDRONATE SODIUM\CHOLECALCIFEROL [Concomitant]
     Active Substance: ALENDRONATE SODIUM\CHOLECALCIFEROL
     Indication: Rheumatoid arthritis
  632. DICLOFENAC SODIUM [Concomitant]
     Active Substance: DICLOFENAC SODIUM
     Indication: Product used for unknown indication
     Route: 047
  633. DICLOFENAC SODIUM [Concomitant]
     Active Substance: DICLOFENAC SODIUM
  634. APREPITANT [Concomitant]
     Active Substance: APREPITANT
     Indication: Product used for unknown indication
  635. KEVZARA [Concomitant]
     Active Substance: SARILUMAB
     Indication: Rheumatoid arthritis
  636. TRIMIPRAMINE [Concomitant]
     Active Substance: TRIMIPRAMINE
     Indication: Product used for unknown indication
  637. USTEKINUMAB [Concomitant]
     Active Substance: USTEKINUMAB
     Indication: Rheumatoid arthritis
     Route: 058
  638. USTEKINUMAB [Concomitant]
     Active Substance: USTEKINUMAB
     Indication: Psoriatic arthropathy
     Route: 058
  639. USTEKINUMAB [Concomitant]
     Active Substance: USTEKINUMAB
     Route: 042
  640. USTEKINUMAB [Concomitant]
     Active Substance: USTEKINUMAB
     Route: 042
  641. USTEKINUMAB [Concomitant]
     Active Substance: USTEKINUMAB
     Route: 042
  642. MARVELON [Concomitant]
     Active Substance: DESOGESTREL\ETHINYL ESTRADIOL
     Indication: Product used for unknown indication
  643. ACETAMINOPHEN\CAFFEINE\CODEINE PHOSPHATE [Concomitant]
     Active Substance: ACETAMINOPHEN\CAFFEINE\CODEINE PHOSPHATE
     Indication: Product used for unknown indication
  644. PANTOPRAZOLE SODIUM [Concomitant]
     Active Substance: PANTOPRAZOLE SODIUM
     Indication: Product used for unknown indication
  645. HYDROXYCHLOROQUINE DIPHOSPHATE [Concomitant]
     Active Substance: HYDROXYCHLOROQUINE DIPHOSPHATE
     Indication: Rheumatoid arthritis
  646. HYDROXYCHLOROQUINE DIPHOSPHATE [Concomitant]
     Active Substance: HYDROXYCHLOROQUINE DIPHOSPHATE
  647. HYDROXYCHLOROQUINE DIPHOSPHATE [Concomitant]
     Active Substance: HYDROXYCHLOROQUINE DIPHOSPHATE
     Route: 048
  648. HYDROXYCHLOROQUINE DIPHOSPHATE [Concomitant]
     Active Substance: HYDROXYCHLOROQUINE DIPHOSPHATE
  649. HYDROXYCHLOROQUINE DIPHOSPHATE [Concomitant]
     Active Substance: HYDROXYCHLOROQUINE DIPHOSPHATE
  650. TYLENOL WITH CODEINE [Concomitant]
     Active Substance: ACETAMINOPHEN\CODEINE PHOSPHATE
     Indication: Product used for unknown indication
  651. TYLENOL WITH CODEINE [Concomitant]
     Active Substance: ACETAMINOPHEN\CODEINE PHOSPHATE
  652. AIMOVIG [Concomitant]
     Active Substance: ERENUMAB-AOOE
     Indication: Migraine
  653. AIMOVIG [Concomitant]
     Active Substance: ERENUMAB-AOOE
  654. ATOMOXETINE [Concomitant]
     Active Substance: ATOMOXETINE
     Indication: Migraine
  655. ATOMOXETINE HYDROCHLORIDE [Concomitant]
     Active Substance: ATOMOXETINE HYDROCHLORIDE
     Indication: Migraine
  656. BOTULINUM TOXIN TYPE A [Concomitant]
     Active Substance: BOTULINUM TOXIN TYPE A
     Indication: Product used for unknown indication
  657. BUTRANS [Concomitant]
     Active Substance: BUPRENORPHINE
     Indication: Product used for unknown indication
  658. CANDESARTAN [Concomitant]
     Active Substance: CANDESARTAN
     Indication: Migraine
     Route: 048
  659. CANDESARTAN [Concomitant]
     Active Substance: CANDESARTAN
     Route: 048
  660. DOMPERIDONE MALEATE [Concomitant]
     Active Substance: DOMPERIDONE MALEATE
     Indication: Product used for unknown indication
  661. DOMPERIDONE MALEATE [Concomitant]
     Active Substance: DOMPERIDONE MALEATE
  662. DOMPERIDONE MALEATE [Concomitant]
     Active Substance: DOMPERIDONE MALEATE
  663. ERENUMAB [Concomitant]
     Active Substance: ERENUMAB
     Indication: Migraine
  664. FLUMETHASONE [Concomitant]
     Active Substance: FLUMETHASONE
     Indication: Product used for unknown indication
  665. GOLD [Concomitant]
     Active Substance: GOLD
     Indication: Product used for unknown indication
  666. HYDROCORTISONE [Concomitant]
     Active Substance: HYDROCORTISONE
     Indication: Rheumatoid arthritis
  667. HYDROCORTISONE [Concomitant]
     Active Substance: HYDROCORTISONE
     Route: 058
  668. HYDROCORTISONE [Concomitant]
     Active Substance: HYDROCORTISONE
     Route: 058
  669. HYDROCORTISONE [Concomitant]
     Active Substance: HYDROCORTISONE
  670. HYDROCORTISONE [Concomitant]
     Active Substance: HYDROCORTISONE
     Route: 048
  671. HYDROCORTISONE [Concomitant]
     Active Substance: HYDROCORTISONE
  672. LAMICTAL [Concomitant]
     Active Substance: LAMOTRIGINE
     Indication: Product used for unknown indication
     Route: 048
  673. MEGLUMINE [Concomitant]
     Active Substance: MEGLUMINE
     Indication: Migraine
  674. METHYLPREDNISOLONE SODIUM SUCCINATE [Concomitant]
     Active Substance: METHYLPREDNISOLONE SODIUM SUCCINATE
     Indication: Product used for unknown indication
  675. MYRBETRIQ [Concomitant]
     Active Substance: MIRABEGRON
     Indication: Product used for unknown indication
     Dosage: TABLET (EXTENDED- RELEASE)
  676. NUCALA [Concomitant]
     Active Substance: MEPOLIZUMAB
     Indication: Product used for unknown indication
  677. OXYQUINOLINE SULFATE [Concomitant]
     Active Substance: OXYQUINOLINE SULFATE
     Indication: Product used for unknown indication
     Route: 048
  678. OXYQUINOLINE SULFATE [Concomitant]
     Active Substance: OXYQUINOLINE SULFATE
     Route: 048
  679. OXYQUINOLINE SULFATE [Concomitant]
     Active Substance: OXYQUINOLINE SULFATE
     Route: 048
  680. PHENYLEPHRINE HYDROCHLORIDE [Concomitant]
     Active Substance: PHENYLEPHRINE HYDROCHLORIDE
     Indication: Rheumatoid arthritis
  681. PHENYLEPHRINE HYDROCHLORIDE [Concomitant]
     Active Substance: PHENYLEPHRINE HYDROCHLORIDE
  682. PHENYLEPHRINE HYDROCHLORIDE [Concomitant]
     Active Substance: PHENYLEPHRINE HYDROCHLORIDE
  683. PHENYLEPHRINE HYDROCHLORIDE [Concomitant]
     Active Substance: PHENYLEPHRINE HYDROCHLORIDE
     Route: 030
  684. RANITIDINE HYDROCHLORIDE [Concomitant]
     Active Substance: RANITIDINE HYDROCHLORIDE
     Indication: Rheumatoid arthritis
  685. DIETARY SUPPLEMENT\HERBALS [Concomitant]
     Active Substance: DIETARY SUPPLEMENT\HERBALS
     Indication: Product used for unknown indication
  686. GOLD SODIUM THIOMALATE [Concomitant]
     Active Substance: GOLD SODIUM THIOMALATE
     Indication: Product used for unknown indication
  687. GOLD SODIUM THIOMALATE [Concomitant]
     Active Substance: GOLD SODIUM THIOMALATE
  688. TOPAMAX [Concomitant]
     Active Substance: TOPIRAMATE
     Indication: Product used for unknown indication
     Route: 048
  689. TOPAMAX [Concomitant]
     Active Substance: TOPIRAMATE
     Route: 048
  690. TOPAMAX [Concomitant]
     Active Substance: TOPIRAMATE
     Route: 048
  691. TOPAMAX [Concomitant]
     Active Substance: TOPIRAMATE
  692. TOPAMAX [Concomitant]
     Active Substance: TOPIRAMATE
     Route: 048
  693. TOPIRAMATE [Concomitant]
     Active Substance: TOPIRAMATE
     Indication: Migraine
  694. TOPIRAMATE [Concomitant]
     Active Substance: TOPIRAMATE
  695. TOPIRAMATE [Concomitant]
     Active Substance: TOPIRAMATE
  696. TOPIRAMATE [Concomitant]
     Active Substance: TOPIRAMATE
  697. ACETAMINOPHEN\OXYCODONE HYDROCHLORIDE [Concomitant]
     Active Substance: ACETAMINOPHEN\OXYCODONE HYDROCHLORIDE
     Indication: Product used for unknown indication
  698. ACETAMINOPHEN\OXYCODONE HYDROCHLORIDE [Concomitant]
     Active Substance: ACETAMINOPHEN\OXYCODONE HYDROCHLORIDE
  699. UNSPECIFIED INGREDIENT [Concomitant]
     Active Substance: UNSPECIFIED INGREDIENT
     Indication: Product used for unknown indication
  700. PANTOPRAZOLE SODIUM ANHYDROUS [Concomitant]
     Active Substance: PANTOPRAZOLE SODIUM ANHYDROUS
     Indication: Product used for unknown indication
  701. PANTOPRAZOLE SODIUM ANHYDROUS [Concomitant]
     Active Substance: PANTOPRAZOLE SODIUM ANHYDROUS
     Route: 016
  702. PANTOPRAZOLE SODIUM ANHYDROUS [Concomitant]
     Active Substance: PANTOPRAZOLE SODIUM ANHYDROUS
  703. AZATHIOPRINE [Concomitant]
     Active Substance: AZATHIOPRINE
     Indication: Rheumatoid arthritis
  704. AZATHIOPRINE [Concomitant]
     Active Substance: AZATHIOPRINE
     Route: 058
  705. CLONIDINE HYDROCHLORIDE [Concomitant]
     Active Substance: CLONIDINE HYDROCHLORIDE
     Indication: Product used for unknown indication
  706. DILTIAZEM HYDROCHLORIDE [Concomitant]
     Active Substance: DILTIAZEM HYDROCHLORIDE
     Indication: Product used for unknown indication
     Route: 042
  707. ENTYVIO [Concomitant]
     Active Substance: VEDOLIZUMAB
     Indication: Product used for unknown indication
  708. FRAMYCETIN SULFATE [Concomitant]
     Active Substance: FRAMYCETIN SULFATE
     Indication: Product used for unknown indication
  709. GRAMICIDIN [Concomitant]
     Active Substance: GRAMICIDIN
     Indication: Product used for unknown indication
  710. ASACOL [Concomitant]
     Active Substance: MESALAMINE
     Indication: Crohn^s disease
  711. AMINOSALICYLATE CALCIUM [Concomitant]
     Active Substance: AMINOSALICYLATE CALCIUM
     Indication: Product used for unknown indication
  712. CALCIUM LACTATE [Concomitant]
     Active Substance: CALCIUM LACTATE
     Indication: Product used for unknown indication
  713. DIPHENHYDRAMINE HYDROCHLORIDE [Concomitant]
     Active Substance: DIPHENHYDRAMINE HYDROCHLORIDE
     Indication: Product used for unknown indication
  714. DOXYCYCLINE HYCLATE [Concomitant]
     Active Substance: DOXYCYCLINE HYCLATE
     Indication: Rheumatoid arthritis
  715. DOXYCYCLINE HYCLATE [Concomitant]
     Active Substance: DOXYCYCLINE HYCLATE
     Route: 058
  716. EMEND [Concomitant]
     Active Substance: APREPITANT
     Indication: Rheumatoid arthritis
     Route: 048
  717. EMEND [Concomitant]
     Active Substance: APREPITANT
     Route: 058
  718. EMEND [Concomitant]
     Active Substance: APREPITANT
     Route: 058
  719. EMEND [Concomitant]
     Active Substance: APREPITANT
     Route: 058
  720. EMEND [Concomitant]
     Active Substance: APREPITANT
     Route: 058
  721. EMEND [Concomitant]
     Active Substance: APREPITANT
     Route: 058
  722. EMEND [Concomitant]
     Active Substance: APREPITANT
  723. EMEND [Concomitant]
     Active Substance: APREPITANT
  724. EMEND [Concomitant]
     Active Substance: APREPITANT
     Route: 058
  725. EMEND [Concomitant]
     Active Substance: APREPITANT
     Route: 058
  726. ETHINYLESTRADIOL;IRON;NORETHISTERONE [Concomitant]
     Indication: Product used for unknown indication
  727. HYALURONIDASE [Concomitant]
     Active Substance: HYALURONIDASE
     Indication: Product used for unknown indication
  728. CLIOQUINOL\FLUMETHASONE [Concomitant]
     Active Substance: CLIOQUINOL\FLUMETHASONE
     Indication: Product used for unknown indication
  729. METHOTREXATE SODIUM [Concomitant]
     Active Substance: METHOTREXATE SODIUM
     Indication: Rheumatoid arthritis
  730. METHOTREXATE SODIUM [Concomitant]
     Active Substance: METHOTREXATE SODIUM
  731. METHOTREXATE SODIUM [Concomitant]
     Active Substance: METHOTREXATE SODIUM
     Route: 048
  732. METHOTREXATE SODIUM [Concomitant]
     Active Substance: METHOTREXATE SODIUM
     Route: 048
  733. METHOTREXATE SODIUM [Concomitant]
     Active Substance: METHOTREXATE SODIUM
     Route: 048
  734. METHOTREXATE SODIUM [Concomitant]
     Active Substance: METHOTREXATE SODIUM
     Route: 048
  735. METHOTREXATE SODIUM [Concomitant]
     Active Substance: METHOTREXATE SODIUM
     Route: 048
  736. METHOTREXATE SODIUM [Concomitant]
     Active Substance: METHOTREXATE SODIUM
     Route: 048
  737. METHOTREXATE SODIUM [Concomitant]
     Active Substance: METHOTREXATE SODIUM
  738. METHOTREXATE SODIUM [Concomitant]
     Active Substance: METHOTREXATE SODIUM
     Route: 048
  739. METHOTREXATE SODIUM [Concomitant]
     Active Substance: METHOTREXATE SODIUM
  740. METHOTREXATE SODIUM [Concomitant]
     Active Substance: METHOTREXATE SODIUM
  741. METHOTREXATE SODIUM [Concomitant]
     Active Substance: METHOTREXATE SODIUM
  742. METHOTREXATE SODIUM [Concomitant]
     Active Substance: METHOTREXATE SODIUM
     Route: 048
  743. METHOTREXATE SODIUM [Concomitant]
     Active Substance: METHOTREXATE SODIUM
     Route: 048
  744. METHOTREXATE SODIUM [Concomitant]
     Active Substance: METHOTREXATE SODIUM
     Route: 048
  745. METHOTREXATE SODIUM [Concomitant]
     Active Substance: METHOTREXATE SODIUM
     Route: 048
  746. METHOTREXATE SODIUM [Concomitant]
     Active Substance: METHOTREXATE SODIUM
  747. METHOTREXATE SODIUM [Concomitant]
     Active Substance: METHOTREXATE SODIUM
  748. METHOTREXATE SODIUM [Concomitant]
     Active Substance: METHOTREXATE SODIUM
  749. METHOTREXATE SODIUM [Concomitant]
     Active Substance: METHOTREXATE SODIUM
  750. METHOTREXATE SODIUM [Concomitant]
     Active Substance: METHOTREXATE SODIUM
  751. METHOTREXATE SODIUM [Concomitant]
     Active Substance: METHOTREXATE SODIUM
  752. METHOTREXATE SODIUM [Concomitant]
     Active Substance: METHOTREXATE SODIUM
  753. METHOTREXATE SODIUM [Concomitant]
     Active Substance: METHOTREXATE SODIUM
  754. METHOTREXATE SODIUM [Concomitant]
     Active Substance: METHOTREXATE SODIUM
     Route: 048
  755. METHOTREXATE SODIUM [Concomitant]
     Active Substance: METHOTREXATE SODIUM
  756. METHOTREXATE SODIUM [Concomitant]
     Active Substance: METHOTREXATE SODIUM
     Route: 058
  757. METHOTREXATE SODIUM [Concomitant]
     Active Substance: METHOTREXATE SODIUM
  758. MORPHINE [Concomitant]
     Active Substance: MORPHINE
     Indication: Rheumatoid arthritis
     Route: 048
  759. PARA-AMINOSALICYLIC ACID [Concomitant]
     Active Substance: AMINOSALICYLIC ACID
     Indication: Product used for unknown indication
  760. PERCOCET [Concomitant]
     Active Substance: ACETAMINOPHEN\OXYCODONE HYDROCHLORIDE
     Indication: Product used for unknown indication
  761. PREVACID [Concomitant]
     Active Substance: LANSOPRAZOLE
     Indication: Product used for unknown indication
  762. CETIRIZINE HYDROCHLORIDE [Concomitant]
     Active Substance: CETIRIZINE HYDROCHLORIDE
     Indication: Urticaria
  763. CETIRIZINE HYDROCHLORIDE [Concomitant]
     Active Substance: CETIRIZINE HYDROCHLORIDE
     Indication: Rheumatoid arthritis
  764. CETIRIZINE HYDROCHLORIDE [Concomitant]
     Active Substance: CETIRIZINE HYDROCHLORIDE
     Route: 048
  765. CETIRIZINE HYDROCHLORIDE [Concomitant]
     Active Substance: CETIRIZINE HYDROCHLORIDE
     Route: 048
  766. CETIRIZINE HYDROCHLORIDE [Concomitant]
     Active Substance: CETIRIZINE HYDROCHLORIDE
     Route: 048
  767. CETIRIZINE HYDROCHLORIDE [Concomitant]
     Active Substance: CETIRIZINE HYDROCHLORIDE
  768. CETIRIZINE HYDROCHLORIDE [Concomitant]
     Active Substance: CETIRIZINE HYDROCHLORIDE
     Route: 040
  769. CETIRIZINE HYDROCHLORIDE [Concomitant]
     Active Substance: CETIRIZINE HYDROCHLORIDE
     Route: 016
  770. ALBUTEROL [Concomitant]
     Active Substance: ALBUTEROL
     Indication: Product used for unknown indication
  771. DICLOFENAC POTASSIUM [Concomitant]
     Active Substance: DICLOFENAC POTASSIUM
     Indication: Product used for unknown indication
  772. DICLOFENAC POTASSIUM [Concomitant]
     Active Substance: DICLOFENAC POTASSIUM
  773. HYALURONIDASE (HUMAN RECOMBINANT) [Concomitant]
     Active Substance: HYALURONIDASE (HUMAN RECOMBINANT)
     Indication: Rheumatoid arthritis
     Route: 042
  774. HYALURONIDASE (HUMAN RECOMBINANT) [Concomitant]
     Active Substance: HYALURONIDASE (HUMAN RECOMBINANT)
     Route: 042
  775. HYALURONIDASE (HUMAN RECOMBINANT) [Concomitant]
     Active Substance: HYALURONIDASE (HUMAN RECOMBINANT)
     Route: 058
  776. ZESTRIL [Concomitant]
     Active Substance: LISINOPRIL
     Indication: Product used for unknown indication
  777. AIMOVIG [Concomitant]
     Active Substance: ERENUMAB-AOOE
     Indication: Migraine
  778. AIMOVIG [Concomitant]
     Active Substance: ERENUMAB-AOOE
  779. BERINERT [Concomitant]
     Active Substance: HUMAN C1-ESTERASE INHIBITOR
     Indication: Product used for unknown indication
  780. QUETIAPINE FUMARATE [Concomitant]
     Active Substance: QUETIAPINE FUMARATE
     Indication: Product used for unknown indication
  781. DILTIAZEM [Concomitant]
     Active Substance: DILTIAZEM
     Indication: Product used for unknown indication
  782. DILTIAZEM [Concomitant]
     Active Substance: DILTIAZEM
  783. HYRIMOZ [Concomitant]
     Active Substance: ADALIMUMAB-ADAZ
     Indication: Rheumatoid arthritis
  784. HYRIMOZ [Concomitant]
     Active Substance: ADALIMUMAB-ADAZ
     Indication: Psoriatic arthropathy
  785. HYRIMOZ [Concomitant]
     Active Substance: ADALIMUMAB-ADAZ
  786. HYRIMOZ [Concomitant]
     Active Substance: ADALIMUMAB-ADAZ
  787. HYRIMOZ [Concomitant]
     Active Substance: ADALIMUMAB-ADAZ
  788. MESALAMINE [Concomitant]
     Active Substance: MESALAMINE
     Indication: Product used for unknown indication
  789. TRIPROLIDINE HYDROCHLORIDE [Concomitant]
     Active Substance: TRIPROLIDINE HYDROCHLORIDE
     Indication: Rheumatoid arthritis
  790. TRIPROLIDINE HYDROCHLORIDE [Concomitant]
     Active Substance: TRIPROLIDINE HYDROCHLORIDE
  791. TOPICORT [Concomitant]
     Active Substance: DESOXIMETASONE
     Indication: Rheumatoid arthritis
     Route: 003
  792. TOPICORT [Concomitant]
     Active Substance: DESOXIMETASONE
  793. PREGABALIN [Concomitant]
     Active Substance: PREGABALIN
     Indication: Product used for unknown indication
  794. LEFLUNOMIDE [Concomitant]
     Active Substance: LEFLUNOMIDE
     Indication: Rheumatoid arthritis
  795. LEFLUNOMIDE [Concomitant]
     Active Substance: LEFLUNOMIDE
     Route: 048
  796. LEFLUNOMIDE [Concomitant]
     Active Substance: LEFLUNOMIDE
  797. LEFLUNOMIDE [Concomitant]
     Active Substance: LEFLUNOMIDE
  798. LEFLUNOMIDE [Concomitant]
     Active Substance: LEFLUNOMIDE
  799. HYDROCORTISONE [Concomitant]
     Active Substance: HYDROCORTISONE
     Indication: Rheumatoid arthritis
  800. HYDROCORTISONE [Concomitant]
     Active Substance: HYDROCORTISONE
     Route: 040
  801. HYDROCORTISONE [Concomitant]
     Active Substance: HYDROCORTISONE
  802. DICLOFENAC SANDOZ [DICLOFENAC SODIUM] [Concomitant]
     Indication: Rheumatoid arthritis
  803. DICLOFENAC SODIUM [Concomitant]
     Active Substance: DICLOFENAC SODIUM
     Indication: Product used for unknown indication
     Route: 047
  804. DICLOFENAC SODIUM [Concomitant]
     Active Substance: DICLOFENAC SODIUM
  805. DICLOFENAC SODIUM [Concomitant]
     Active Substance: DICLOFENAC SODIUM
     Indication: Rheumatoid arthritis
  806. DICLOFENAC SODIUM [Concomitant]
     Active Substance: DICLOFENAC SODIUM
     Indication: Osteoarthritis
  807. DICLOFENAC SODIUM [Concomitant]
     Active Substance: DICLOFENAC SODIUM
     Indication: Inflammation
  808. DICLOFENAC SODIUM [Concomitant]
     Active Substance: DICLOFENAC SODIUM
  809. DICLOFENAC SODIUM [Concomitant]
     Active Substance: DICLOFENAC SODIUM
  810. APREMILAST [Concomitant]
     Active Substance: APREMILAST
     Indication: Product used for unknown indication
     Route: 048
  811. APREMILAST [Concomitant]
     Active Substance: APREMILAST
  812. ALENDRONATE SODIUM [Concomitant]
     Active Substance: ALENDRONATE SODIUM
     Indication: Rheumatoid arthritis
  813. ALENDRONATE SODIUM [Concomitant]
     Active Substance: ALENDRONATE SODIUM
  814. ALENDRONATE SODIUM [Concomitant]
     Active Substance: ALENDRONATE SODIUM
  815. MINOCYCLINE HYDROCHLORIDE [Concomitant]
     Active Substance: MINOCYCLINE HYDROCHLORIDE
     Indication: Product used for unknown indication

REACTIONS (1)
  - Death [Fatal]
